FAERS Safety Report 25365809 (Version 1)
Quarter: 2025Q2

REPORT INFORMATION
  Report Type: Spontaneous
  Country: CH (occurrence: CH)
  Receive Date: 20250528
  Receipt Date: 20250528
  Transmission Date: 20250716
  Serious: Yes (Death, Other)
  Sender: NOVO NORDISK
  Company Number: None

PATIENT
  Age: 71 Year
  Sex: Female

DRUGS (10)
  1. BUDESONIDE\FORMOTEROL FUMARATE DIHYDRATE [Concomitant]
     Active Substance: BUDESONIDE\FORMOTEROL FUMARATE DIHYDRATE
     Indication: Asthma
     Route: 055
  2. WEGOVY [Suspect]
     Active Substance: SEMAGLUTIDE
     Dosage: 0.5 MG, QW
     Route: 058
  3. WEGOVY [Suspect]
     Active Substance: SEMAGLUTIDE
     Dosage: 1 MG, QW
     Route: 058
     Dates: start: 202503
  4. WEGOVY [Suspect]
     Active Substance: SEMAGLUTIDE
     Indication: Obesity
     Dosage: 0.25 MG, QW
     Route: 058
     Dates: start: 202501
  5. WEGOVY [Suspect]
     Active Substance: SEMAGLUTIDE
     Dosage: 1.7 MG, QW
     Route: 058
     Dates: start: 20250417
  6. MEBEVERINE [Concomitant]
     Active Substance: MEBEVERINE
     Indication: Gastrointestinal pain
     Route: 048
  7. ASPIRIN [Concomitant]
     Active Substance: ASPIRIN
     Indication: Gastrointestinal pain
     Route: 048
  8. BETAHISTINE [Concomitant]
     Active Substance: BETAHISTINE
     Indication: Balance disorder
     Route: 048
  9. LANSOPRAZOLE [Concomitant]
     Active Substance: LANSOPRAZOLE
     Indication: Gastrointestinal pain
     Route: 048
  10. Co valsartan [Concomitant]
     Indication: Hypertension
     Route: 048

REACTIONS (4)
  - Palpitations [Not Recovered/Not Resolved]
  - Sudden death [Fatal]
  - Tachycardia [Unknown]
  - Vomiting [Unknown]

NARRATIVE: CASE EVENT DATE: 20250327
